FAERS Safety Report 6825842-4 (Version None)
Quarter: 2010Q3

REPORT INFORMATION
  Report Type: 
  Country: None (occurrence: None)
  Receive Date: 20100707
  Receipt Date: 20100707
  Transmission Date: 20110219
  Serious: Yes (Other)
  Sender: FDA-Public Use
  Company Number: None

PATIENT
  Age: 52 Year
  Sex: Female

DRUGS (3)
  1. AMLODIPINE [Suspect]
     Indication: CORONARY ARTERY BYPASS
     Dosage: 5MG
     Dates: start: 20060501
  2. AMLODIPINE [Suspect]
     Indication: CORONARY ARTERY DISEASE
     Dosage: 5MG
     Dates: start: 20060501
  3. AMLODIPINE [Suspect]
     Indication: HYPERTENSION
     Dosage: 5MG
     Dates: start: 20060501

REACTIONS (1)
  - PARAESTHESIA [None]
